FAERS Safety Report 6980456-0 (Version None)
Quarter: 2010Q3

REPORT INFORMATION
  Report Type: 
  Country: None (occurrence: None)
  Receive Date: 20100909
  Receipt Date: 20100825
  Transmission Date: 20110219
  Serious: Yes (Other)
  Sender: FDA-Public Use
  Company Number: 010806

PATIENT
  Age: 3 Year
  Sex: Female

DRUGS (5)
  1. BUSULFEX [Suspect]
     Indication: CORD BLOOD TRANSPLANT THERAPY
  2. CYCLOPHOSPHAMIDE [Concomitant]
  3. ANTI-THYMOCYTE GLOBULIN NOS [Concomitant]
  4. METHYLPREDNISOLONE [Concomitant]
  5. CYCLOSPORINE [Concomitant]

REACTIONS (9)
  - EXPRESSIVE LANGUAGE DISORDER [None]
  - GRAFT VERSUS HOST DISEASE [None]
  - HYPERTENSION [None]
  - HYPERTROPHIC CARDIOMYOPATHY [None]
  - HYPOTONIA [None]
  - LEUKODYSTROPHY [None]
  - NEUROPATHY PERIPHERAL [None]
  - SEPSIS [None]
  - VISUAL IMPAIRMENT [None]
